FAERS Safety Report 10062155 (Version 1)
Quarter: 2014Q2

REPORT INFORMATION
  Report Type: Spontaneous
  Country: KR (occurrence: KR)
  Receive Date: 20140407
  Receipt Date: 20140407
  Transmission Date: 20141212
  Serious: Yes (Other)
  Sender: FDA-Public Use
  Company Number: KR-PFIZER INC-2014092091

PATIENT
  Sex: Female

DRUGS (2)
  1. ALESSE [Suspect]
     Indication: CONTRACEPTION
     Dosage: UNK
     Route: 048
     Dates: start: 20140321, end: 20140329
  2. ALESSE [Suspect]
     Dosage: UNK
     Route: 048
     Dates: start: 20140321, end: 20140329

REACTIONS (6)
  - Intra-abdominal haemorrhage [Unknown]
  - Uterine haemorrhage [Unknown]
  - Vomiting [Unknown]
  - Abdominal pain upper [Unknown]
  - Pyrexia [Unknown]
  - Pain [Unknown]
